FAERS Safety Report 12009815 (Version 1)
Quarter: 2016Q1

REPORT INFORMATION
  Report Type: Spontaneous
  Country: US (occurrence: None)
  Receive Date: 20160204
  Receipt Date: 20160204
  Transmission Date: 20160526
  Serious: No
  Sender: FDA-Public Use
  Company Number: None

PATIENT
  Age: 62 Year
  Sex: Female

DRUGS (1)
  1. IBRANCE [Suspect]
     Active Substance: PALBOCICLIB
     Dosage: 125MG CAP QD X 21DAYS/28D  PO
     Route: 048
     Dates: start: 20150923

REACTIONS (1)
  - Skin irritation [None]

NARRATIVE: CASE EVENT DATE: 201601
